FAERS Safety Report 21098457 (Version 1)
Quarter: 2022Q3

REPORT INFORMATION
  Report Type: Spontaneous
  Country: US (occurrence: None)
  Receive Date: 20220718
  Receipt Date: 20220718
  Transmission Date: 20221026
  Serious: No
  Sender: FDA-Public Use
  Company Number: None

PATIENT
  Sex: Female

DRUGS (1)
  1. STIVARGA [Suspect]
     Active Substance: REGORAFENIB
     Indication: Colon cancer
     Dosage: STIVARGA FREQUENCY: 1 TIME A DAY FOR 21 DAYS OF A 28-DAY CYCLE?
     Route: 048
     Dates: start: 20220524

REACTIONS (1)
  - Palmoplantar keratoderma [None]
